FAERS Safety Report 4317493-0 (Version None)
Quarter: 2004Q1

REPORT INFORMATION
  Report Type: 
  Country: None (occurrence: None)
  Receive Date: 20040312
  Receipt Date: 20040310
  Transmission Date: 20041129
  Serious: Yes (Hospitalization)
  Sender: FDA-Public Use
  Company Number: STA-AE-04-MTX-099

PATIENT
  Age: 51 Year
  Sex: Female

DRUGS (2)
  1. METHOTREXATE [Suspect]
  2. CORTICOSTEROID NOS [Concomitant]

REACTIONS (9)
  - ANAL CANCER [None]
  - CULTURE POSITIVE [None]
  - MELAENA [None]
  - OSTEONECROSIS [None]
  - PERIANAL ABSCESS [None]
  - PERIANAL ERYTHEMA [None]
  - PERIPROCTITIS [None]
  - SEPSIS [None]
  - STREPTOCOCCAL SEPSIS [None]
